FAERS Safety Report 24339682 (Version 3)
Quarter: 2024Q4

REPORT INFORMATION
  Report Type: Spontaneous
  Country: US (occurrence: US)
  Receive Date: 20240919
  Receipt Date: 20241230
  Transmission Date: 20250114
  Serious: Yes (Other)
  Sender: JOHNSON AND JOHNSON
  Company Number: US-JNJFOC-20240924618

PATIENT
  Age: 8 Decade
  Sex: Female

DRUGS (7)
  1. TREMFYA [Suspect]
     Active Substance: GUSELKUMAB
     Indication: Psoriatic arthropathy
     Dosage: BOOSTER DOSE INJECTION SITE LEG AND THIGH
     Route: 058
     Dates: start: 202307
  2. METOPROLOL [Concomitant]
     Active Substance: METOPROLOL
     Indication: Hypertension
     Dates: start: 2024
  3. LOSARTAN [Concomitant]
     Active Substance: LOSARTAN
     Indication: Hypertension
  4. ROSUVASTATIN [Concomitant]
     Active Substance: ROSUVASTATIN
     Indication: Blood cholesterol
  5. ERGOCALCIFEROL [Concomitant]
     Active Substance: ERGOCALCIFEROL
     Indication: Inflammation
  6. FISH OIL [Concomitant]
     Active Substance: FISH OIL
     Indication: Inflammation
  7. CELECOXIB [Concomitant]
     Active Substance: CELECOXIB
     Indication: Pain

REACTIONS (8)
  - Diverticulitis [Recovered/Resolved]
  - Immune-mediated adverse reaction [Unknown]
  - Psoriatic arthropathy [Not Recovered/Not Resolved]
  - Product dose omission issue [Unknown]
  - Product storage error [Unknown]
  - COVID-19 [Recovering/Resolving]
  - Drug ineffective [Unknown]
  - Bronchitis [Recovered/Resolved]

NARRATIVE: CASE EVENT DATE: 20240701
